FAERS Safety Report 5676662-8 (Version None)
Quarter: 2008Q1

REPORT INFORMATION
  Report Type: 
  Country: None (occurrence: None)
  Receive Date: 20080320
  Receipt Date: 20080320
  Transmission Date: 20080703
  Serious: Yes (Other)
  Sender: FDA-Public Use
  Company Number: None

PATIENT
  Age: 6 Year
  Sex: Male
  Weight: 22.6799 kg

DRUGS (2)
  1. PREDNISOLONE [Suspect]
     Indication: ASTHMA
     Dosage: 2 TSP QD X 5 DAYS
     Dates: start: 20080206
  2. PRELONE [Suspect]
     Dates: start: 20061004

REACTIONS (1)
  - VOMITING [None]
